FAERS Safety Report 9250603 (Version 1)
Quarter: 2013Q2

REPORT INFORMATION
  Report Type: Spontaneous
  Country: CH (occurrence: CH)
  Receive Date: 20130424
  Receipt Date: 20130424
  Transmission Date: 20140414
  Serious: Yes (Death, Hospitalization)
  Sender: FDA-Public Use
  Company Number: CH-RANBAXY-2013US-66750

PATIENT
  Age: 83 Year
  Sex: Male

DRUGS (6)
  1. ATORVASTATIN [Suspect]
     Indication: HYPERLIPIDAEMIA
     Dosage: 20 MG, QD
     Route: 065
  2. ISOSORBIDE DINITRATE [Concomitant]
     Indication: CARDIAC DISORDER
     Dosage: 40 MG, QD
     Route: 065
  3. ACETYLSALICYLIC ACID [Concomitant]
     Indication: CARDIAC DISORDER
     Dosage: 100 MG, QD
     Route: 065
  4. BECLOMETASONE [Concomitant]
     Indication: CHRONIC OBSTRUCTIVE PULMONARY DISEASE
     Dosage: UNK
     Route: 055
  5. FORMOTEROLE [Concomitant]
     Indication: CHRONIC OBSTRUCTIVE PULMONARY DISEASE
     Dosage: UNK
     Route: 055
  6. OXAZEPAM [Concomitant]
     Indication: INSOMNIA
     Dosage: 15 MG DAILY
     Route: 065

REACTIONS (4)
  - Acute hepatic failure [Fatal]
  - Encephalopathy [Unknown]
  - Hepatorenal syndrome [Unknown]
  - Sepsis [Unknown]
